FAERS Safety Report 19776528 (Version 1)
Quarter: 2021Q3

REPORT INFORMATION
  Report Type: Report from Study
  Country: TW (occurrence: TW)
  Receive Date: 20210901
  Receipt Date: 20210901
  Transmission Date: 20211014
  Serious: Yes (Other)
  Sender: FDA-Public Use
  Company Number: TW-GLAXOSMITHKLINE-TW2021GSK183378

PATIENT
  Age: 48 Year
  Sex: Female

DRUGS (6)
  1. LOW MOLECULAR WEIGHT HEPARIN [Suspect]
     Active Substance: UNSPECIFIED INGREDIENT
     Indication: PRODUCT USED FOR UNKNOWN INDICATION
     Dosage: UNK
  2. ASPIRIN. [Suspect]
     Active Substance: ASPIRIN
     Indication: PRODUCT USED FOR UNKNOWN INDICATION
     Dosage: UNK
  3. PREDNISOLONE. [Suspect]
     Active Substance: PREDNISOLONE
     Indication: IMMUNOMODULATORY THERAPY
     Dosage: UNK
  4. BELIMUMAB [Suspect]
     Active Substance: BELIMUMAB
     Indication: SYSTEMIC LUPUS ERYTHEMATOSUS
     Dosage: 400 MG
  5. AZATHIOPRINE. [Suspect]
     Active Substance: AZATHIOPRINE
     Indication: IMMUNOMODULATORY THERAPY
     Dosage: UNK
  6. HYDROXYCHLOROQUINE [Suspect]
     Active Substance: HYDROXYCHLOROQUINE
     Indication: IMMUNOMODULATORY THERAPY
     Dosage: UNK

REACTIONS (2)
  - Abortion spontaneous [Unknown]
  - Exposure during pregnancy [Unknown]
